FAERS Safety Report 4686023-6 (Version None)
Quarter: 2005Q2

REPORT INFORMATION
  Report Type: 
  Country: None (occurrence: None)
  Receive Date: 20050606
  Receipt Date: 20050429
  Transmission Date: 20051028
  Serious: Yes (Other)
  Sender: FDA-Public Use
  Company Number: 214677

PATIENT
  Age: 14 Year
  Sex: Male

DRUGS (1)
  1. NUTROPIN [Suspect]
     Dates: start: 20050101

REACTIONS (1)
  - LUNG NEOPLASM [None]
